FAERS Safety Report 20730191 (Version 1)
Quarter: 2022Q2

REPORT INFORMATION
  Report Type: Report from Study
  Country: US (occurrence: US)
  Receive Date: 20220420
  Receipt Date: 20220420
  Transmission Date: 20220721
  Serious: Yes (Other)
  Sender: FDA-Public Use
  Company Number: US-MYLANLABS-2022M1028135

PATIENT

DRUGS (6)
  1. FLUDARABINE [Suspect]
     Active Substance: FLUDARABINE PHOSPHATE
     Indication: Prophylaxis
     Dosage: UNK
     Route: 065
  2. FLUDARABINE [Suspect]
     Active Substance: FLUDARABINE PHOSPHATE
     Indication: Bone marrow conditioning regimen
  3. MELPHALAN [Suspect]
     Active Substance: MELPHALAN
     Indication: Prophylaxis
     Dosage: UNK
     Route: 065
  4. MELPHALAN [Suspect]
     Active Substance: MELPHALAN
     Indication: Bone marrow conditioning regimen
  5. ALEMTUZUMAB [Suspect]
     Active Substance: ALEMTUZUMAB
     Indication: Prophylaxis
     Dosage: UNK
     Route: 065
  6. ALEMTUZUMAB [Suspect]
     Active Substance: ALEMTUZUMAB
     Indication: Bone marrow conditioning regimen

REACTIONS (1)
  - Drug ineffective [Unknown]
